FAERS Safety Report 6159431-4 (Version None)
Quarter: 2009Q2

REPORT INFORMATION
  Report Type: 
  Country: None (occurrence: None)
  Receive Date: 20090417
  Receipt Date: 20090410
  Transmission Date: 20091009
  Serious: Yes (Hospitalization)
  Sender: FDA-Public Use
  Company Number: US-GILEAD-2009-0021423

PATIENT
  Sex: Male
  Weight: 59.02 kg

DRUGS (25)
  1. EMTRIVA [Suspect]
     Indication: HIV INFECTION
  2. BLINDED MARAVIROC [Suspect]
     Indication: HIV INFECTION
     Route: 048
     Dates: start: 20050418, end: 20051006
  3. NORVIR [Suspect]
  4. REYATAZ [Suspect]
  5. FUZEON [Suspect]
  6. FLUTICASONE [Concomitant]
     Dates: start: 20021009
  7. CETIRIZINE HYDROCHLORIDE [Concomitant]
     Dates: start: 20050202
  8. LORAZEPAM [Concomitant]
     Dates: start: 20041220
  9. OXANDROLONE [Concomitant]
     Dates: start: 20030221
  10. FENOFIBRATE [Concomitant]
     Dates: start: 20041214
  11. ALBUTEROL [Concomitant]
     Dates: start: 20050521
  12. LOMOTIL [Concomitant]
     Dates: start: 20010604
  13. CELEXA [Concomitant]
     Dates: start: 20040225
  14. PROCRIT [Concomitant]
     Dates: start: 20020522
  15. BACTRIM [Concomitant]
     Dates: start: 20010604
  16. AZITHROMYCIN [Concomitant]
     Dates: start: 20010604
  17. FERROUS SULFATE TAB [Concomitant]
     Dates: start: 20021210
  18. CALCIUM [Concomitant]
     Dates: start: 20030107
  19. TESTOSTERONE [Concomitant]
     Dates: start: 20020101
  20. DIFLUCAN [Concomitant]
     Dates: start: 20040505
  21. MAGNESIUM OXIDE [Concomitant]
     Dates: start: 20040503
  22. TROSPIUM CHLORIDE [Concomitant]
     Dates: start: 20050418
  23. FENTANYL [Concomitant]
     Dates: start: 20050902
  24. VICODIN [Concomitant]
     Dates: start: 20050902
  25. ONDANSETRON [Concomitant]
     Dates: start: 20040421

REACTIONS (1)
  - PANCREATITIS RELAPSING [None]
